FAERS Safety Report 13591146 (Version 2)
Quarter: 2017Q3

REPORT INFORMATION
  Report Type: Spontaneous
  Country: US (occurrence: US)
  Receive Date: 20170530
  Receipt Date: 20170721
  Transmission Date: 20171127
  Serious: Yes (Death, Other)
  Sender: FDA-Public Use
  Company Number: US-HARRIS PHARMACEUTICAL-2017HAR00009

PATIENT
  Age: 28 Year
  Sex: Male
  Weight: 90.7 kg

DRUGS (2)
  1. FLUCONAZOLE. [Suspect]
     Active Substance: FLUCONAZOLE
     Dosage: UNK
  2. FLUCONAZOLE. [Suspect]
     Active Substance: FLUCONAZOLE
     Indication: TINEA VERSICOLOUR
     Dosage: 400 MG, ON DAY 1 AND REPEAT 1 WEEK LATER
     Route: 048
     Dates: start: 20161111, end: 20161111

REACTIONS (14)
  - Completed suicide [Fatal]
  - Epigastric discomfort [Recovering/Resolving]
  - Hallucination, auditory [Recovering/Resolving]
  - Nausea [Unknown]
  - Dizziness [Recovering/Resolving]
  - Lethargy [Unknown]
  - Anxiety [Unknown]
  - Flat affect [Unknown]
  - Sinus tachycardia [Unknown]
  - Atrioventricular block first degree [Unknown]
  - Tinnitus [Recovering/Resolving]
  - Chest pain [Recovering/Resolving]
  - Palpitations [Recovered/Resolved]
  - Ear congestion [Unknown]

NARRATIVE: CASE EVENT DATE: 2016
